FAERS Safety Report 5875372-1 (Version None)
Quarter: 2008Q3

REPORT INFORMATION
  Report Type: 
  Country: None (occurrence: None)
  Receive Date: 20080909
  Receipt Date: 20080905
  Transmission Date: 20090109
  Serious: Yes (Life-Threatening, Hospitalization, Other)
  Sender: FDA-Public Use
  Company Number: US-GILEAD-2008-0017777

PATIENT
  Sex: Female
  Weight: 54.48 kg

DRUGS (8)
  1. TRUVADA [Suspect]
     Indication: HIV INFECTION
     Route: 048
     Dates: start: 20080709, end: 20080810
  2. KALETRA [Concomitant]
     Indication: HIV INFECTION
     Route: 048
     Dates: start: 20080709, end: 20080810
  3. BACTRIM DS [Concomitant]
     Indication: PANCYTOPENIA
     Route: 048
     Dates: start: 20060101, end: 20070801
  4. BACTRIM DS [Concomitant]
     Route: 048
     Dates: start: 20080709, end: 20080810
  5. FLUCONAZOLE [Concomitant]
     Route: 048
     Dates: start: 20080709
  6. PRILOSEC [Concomitant]
     Route: 048
  7. OXANDROLONE [Concomitant]
     Route: 048
  8. ZOFRAN [Concomitant]
     Indication: NAUSEA

REACTIONS (2)
  - RENAL FAILURE ACUTE [None]
  - RENAL FAILURE CHRONIC [None]
